FAERS Safety Report 8838765 (Version 1)
Quarter: 2012Q4

REPORT INFORMATION
  Report Type: 
  Country: GB (occurrence: GB)
  Receive Date: 20121013
  Receipt Date: 20121013
  Transmission Date: 20130627
  Serious: Yes (Life-Threatening, Disabling, Other)
  Sender: FDA-Public Use
  Company Number: GB-TEVA-363129ISR

PATIENT
  Age: 50 Year
  Sex: Female
  Weight: 50 kg

DRUGS (1)
  1. RISPERIDONE [Suspect]
     Indication: ABNORMAL BEHAVIOUR
     Dosage: Between 1 to 2mg daily. Various ongoing.
     Route: 048
     Dates: start: 200812

REACTIONS (5)
  - Extrapyramidal disorder [Not Recovered/Not Resolved]
  - Pleurothotonus [Not Recovered/Not Resolved]
  - Aphasia [Not Recovered/Not Resolved]
  - Dystonia [Not Recovered/Not Resolved]
  - Oromandibular dystonia [Not Recovered/Not Resolved]
